FAERS Safety Report 25240151 (Version 2)
Quarter: 2025Q2

REPORT INFORMATION
  Report Type: Spontaneous
  Country: NL (occurrence: NL)
  Receive Date: 20250425
  Receipt Date: 20250510
  Transmission Date: 20250717
  Serious: Yes (Other)
  Sender: AMGEN
  Company Number: NL-AMGEN-NLDSP2025081088

PATIENT
  Age: 58 Year
  Sex: Female

DRUGS (1)
  1. INTERFERON GAMMA [Suspect]
     Active Substance: INTERFERON GAMMA
     Indication: Tracheobronchitis
     Route: 065

REACTIONS (3)
  - Inflammation [Unknown]
  - Haemophagocytic lymphohistiocytosis [Unknown]
  - Off label use [Unknown]
